FAERS Safety Report 19609826 (Version 1)
Quarter: 2021Q3

REPORT INFORMATION
  Report Type: Spontaneous
  Country: US (occurrence: US)
  Receive Date: 20210726
  Receipt Date: 20210726
  Transmission Date: 20211014
  Serious: Yes (Other)
  Sender: FDA-Public Use
  Company Number: US-GUERBET-US-20210097

PATIENT
  Age: 53 Year
  Sex: Female

DRUGS (1)
  1. IOVERSOL [Suspect]
     Active Substance: IOVERSOL
     Indication: ANGIOGRAM CEREBRAL
     Route: 013

REACTIONS (2)
  - Headache [Not Recovered/Not Resolved]
  - Contrast encephalopathy [Recovered/Resolved]
